FAERS Safety Report 5865269-5 (Version None)
Quarter: 2008Q3

REPORT INFORMATION
  Report Type: 
  Country: None (occurrence: None)
  Receive Date: 20080829
  Receipt Date: 20080319
  Transmission Date: 20090109
  Serious: No
  Sender: FDA-Public Use
  Company Number: A0707504A

PATIENT
  Age: 50 Year
  Sex: Male

DRUGS (4)
  1. BECONASE [Suspect]
     Indication: NASAL CONGESTION
     Dosage: 2SPR AT NIGHT
     Route: 045
  2. ANTI-CHOLESTEROL MEDICATION [Concomitant]
  3. DOXYCYCLINE [Concomitant]
  4. UNKNOWN MEDICATION [Concomitant]

REACTIONS (2)
  - DRUG INEFFECTIVE [None]
  - PHARMACEUTICAL PRODUCT COMPLAINT [None]
